FAERS Safety Report 5599617-0 (Version None)
Quarter: 2008Q1

REPORT INFORMATION
  Report Type: 
  Country: None (occurrence: None)
  Receive Date: 20080123
  Receipt Date: 20080116
  Transmission Date: 20080703
  Serious: Yes (Death)
  Sender: FDA-Public Use
  Company Number: CN-BAYER-200810881GPV

PATIENT
  Age: 50 Year
  Sex: Male

DRUGS (2)
  1. NEXAVAR [Suspect]
     Indication: METASTATIC RENAL CELL CARCINOMA
     Dosage: TOTAL DAILY DOSE: 800 MG
     Route: 048
     Dates: start: 20071210, end: 20071226
  2. INF-A [Concomitant]
     Indication: METASTATIC RENAL CELL CARCINOMA
     Route: 042
     Dates: start: 20071210, end: 20071226

REACTIONS (4)
  - DECREASED APPETITE [None]
  - DYSPNOEA [None]
  - PYREXIA [None]
  - RASH [None]
